FAERS Safety Report 10142075 (Version 2)
Quarter: 2014Q2

REPORT INFORMATION
  Report Type: Spontaneous
  Country: US (occurrence: US)
  Receive Date: 20140429
  Receipt Date: 20140529
  Transmission Date: 20141212
  Serious: No
  Sender: FDA-Public Use
  Company Number: US-FRI-1000066863

PATIENT
  Age: 51 Year
  Sex: Male

DRUGS (11)
  1. FETZIMA [Suspect]
     Indication: DEPRESSION
     Dosage: 40 MG
     Route: 048
     Dates: start: 20140225, end: 20140324
  2. FETZIMA [Suspect]
     Dosage: 80 MG
     Route: 048
     Dates: start: 20140325, end: 20140421
  3. FETZIMA [Suspect]
     Indication: DEPRESSION
     Dosage: 120 MG
     Route: 048
     Dates: start: 20140422, end: 201405
  4. NORCO [Concomitant]
     Dosage: 10/325 MG, 4 TIMES A DAY
  5. ALPRAZOLAM [Concomitant]
     Dosage: 8 MG
  6. LOTREL [Concomitant]
     Dosage: 5/20 MG
     Dates: end: 201403
  7. LOTREL [Concomitant]
     Dosage: 5/10 MG
     Dates: start: 201403
  8. METOPROLOL [Concomitant]
     Dates: start: 201403
  9. OMEPRAZOLE [Concomitant]
     Indication: DYSPEPSIA
  10. LYRICA [Concomitant]
  11. CELEBREX [Concomitant]
     Indication: ARTHRITIS
     Dosage: BID

REACTIONS (3)
  - Heart rate increased [Recovered/Resolved]
  - Urinary retention [Not Recovered/Not Resolved]
  - Drug ineffective [Recovered/Resolved]
